FAERS Safety Report 8895244 (Version 1)
Quarter: 2012Q4

REPORT INFORMATION
  Report Type: 
  Country: ES (occurrence: ES)
  Receive Date: 20121108
  Receipt Date: 20121108
  Transmission Date: 20130627
  Serious: Yes (Hospitalization, Other)
  Sender: FDA-Public Use
  Company Number: ES-009507513-2011SP018735

PATIENT
  Age: 51 Year
  Sex: Male

DRUGS (1)
  1. POSACONAZOLE [Suspect]
     Indication: ANTIFUNGAL PROPHYLAXIS
     Dosage: 300 mg, QD
     Route: 048
     Dates: start: 20110418, end: 20110427

REACTIONS (2)
  - Hepatotoxicity [Recovering/Resolving]
  - Respiratory failure [Recovered/Resolved]
